FAERS Safety Report 17352438 (Version 1)
Quarter: 2020Q1

REPORT INFORMATION
  Report Type: Report from Study
  Country: None (occurrence: CO)
  Receive Date: 20200130
  Receipt Date: 20200130
  Transmission Date: 20200409
  Serious: Yes (Death, Hospitalization)
  Sender: FDA-Public Use
  Company Number: CO-ABBVIE-20K-036-3257809-00

PATIENT
  Age: 68 Year
  Sex: Female
  Weight: 74 kg

DRUGS (1)
  1. HUMIRA [Suspect]
     Active Substance: ADALIMUMAB
     Indication: PSORIASIS
     Route: 058
     Dates: start: 20190124, end: 20191218

REACTIONS (4)
  - Pancreatic carcinoma [Fatal]
  - Vomiting [Fatal]
  - Malignant peritoneal neoplasm [Fatal]
  - Aspiration [Fatal]

NARRATIVE: CASE EVENT DATE: 20191017
